FAERS Safety Report 12831267 (Version 2)
Quarter: 2016Q4

REPORT INFORMATION
  Report Type: Report from Study
  Country: None (occurrence: US)
  Receive Date: 20161008
  Receipt Date: 20161008
  Transmission Date: 20170207
  Serious: Yes (Hospitalization, Other)
  Sender: FDA-Public Use
  Company Number: US-ABBVIE-16K-163-1687769-00

PATIENT
  Age: 56 Year
  Sex: Male
  Weight: 93.07 kg

DRUGS (2)
  1. HUMIRA [Suspect]
     Active Substance: ADALIMUMAB
     Route: 058
     Dates: start: 2016, end: 201609
  2. HUMIRA [Suspect]
     Active Substance: ADALIMUMAB
     Indication: COLITIS ULCERATIVE
     Route: 058
     Dates: start: 201602, end: 20160722

REACTIONS (7)
  - Coronary artery occlusion [Recovered/Resolved]
  - Coronary artery occlusion [Not Recovered/Not Resolved]
  - Coronary artery occlusion [Recovered/Resolved]
  - Myocardial infarction [Recovering/Resolving]
  - Chest pain [Recovered/Resolved]
  - Chest pain [Recovered/Resolved]
  - Pain in extremity [Recovered/Resolved]

NARRATIVE: CASE EVENT DATE: 201606
